FAERS Safety Report 6333142-4 (Version None)
Quarter: 2009Q3

REPORT INFORMATION
  Report Type: 
  Country: None (occurrence: None)
  Receive Date: 20090828
  Receipt Date: 20090820
  Transmission Date: 20100115
  Serious: Yes (Hospitalization, Disabling, Other)
  Sender: FDA-Public Use
  Company Number: US-MERCK-0906USA03279

PATIENT
  Age: 41 Year
  Sex: Female

DRUGS (1)
  1. FOSAMAX [Suspect]
     Indication: OSTEOPOROSIS
     Route: 048

REACTIONS (10)
  - ANXIETY [None]
  - DENTAL CARIES [None]
  - DEPRESSION [None]
  - HORMONE LEVEL ABNORMAL [None]
  - JOINT DISLOCATION [None]
  - MASTICATION DISORDER [None]
  - OSTEONECROSIS [None]
  - PAIN [None]
  - TOOTH LOSS [None]
  - UTERINE DISORDER [None]
